FAERS Safety Report 5239358-2 (Version None)
Quarter: 2007Q1

REPORT INFORMATION
  Report Type: 
  Country: None (occurrence: None)
  Receive Date: 20070214
  Receipt Date: 20070214
  Transmission Date: 20070707
  Serious: Yes (Hospitalization)
  Sender: FDA-Public Use
  Company Number: None

PATIENT
  Age: 54 Year
  Sex: Male
  Weight: 50.3493 kg

DRUGS (21)
  1. METFORMIN HCL [Suspect]
     Indication: DIABETES MELLITUS
     Dosage: 500 MG BID
     Dates: start: 20060727, end: 20061027
  2. ACCU-CHEK COMFORT CV (GLUCOSE) [Concomitant]
  3. ASPIRIN [Concomitant]
  4. FELODIPINE [Concomitant]
  5. FUROSEMIDE [Concomitant]
  6. IBUPROFEN [Concomitant]
  7. INSULIN NOVOLIN [Concomitant]
  8. INSULIN SYRINGE [Concomitant]
  9. LANCET,TECHLITE [Concomitant]
  10. LISINOPRIL [Concomitant]
  11. OMEPRAZOLE [Concomitant]
  12. NON-VA FLUDROCORTISONE ACETATE [Concomitant]
  13. NON-VA GABAPENTIN [Concomitant]
  14. NON-VA SULFAMETHOXAZOLE/TRIMETH [Concomitant]
  15. NON-VA TACROLIMUS [Concomitant]
  16. ACETAMINOPHEN [Concomitant]
  17. FLUDROCORTISONE ACETATE [Concomitant]
  18. INSULIN REG HUMAN (NOVOLIN R) [Concomitant]
  19. NICOTINE [Concomitant]
  20. OMEPRAZOLE [Concomitant]
  21. TEMAZEPAM [Concomitant]

REACTIONS (1)
  - ACIDOSIS [None]
